FAERS Safety Report 19983432 (Version 1)
Quarter: 2021Q4

REPORT INFORMATION
  Report Type: Spontaneous
  Country: US (occurrence: US)
  Receive Date: 20211021
  Receipt Date: 20211021
  Transmission Date: 20220303
  Serious: No
  Sender: FDA-Public Use
  Company Number: US-BEH-2021137101

PATIENT
  Sex: Female

DRUGS (9)
  1. HIZENTRA [Suspect]
     Active Substance: HUMAN IMMUNOGLOBULIN G
     Indication: Chronic inflammatory demyelinating polyradiculoneuropathy
     Dosage: 20 GRAM, EVERY 4 DAYS
     Route: 058
     Dates: start: 202104
  2. HIZENTRA [Suspect]
     Active Substance: HUMAN IMMUNOGLOBULIN G
     Dosage: UNK
     Route: 058
  3. BRIMONIDINE TARTRATE [Concomitant]
     Active Substance: BRIMONIDINE TARTRATE
     Route: 065
  4. FOLIC ACID [Concomitant]
     Active Substance: FOLIC ACID
     Route: 065
  5. LATANOPROST [Concomitant]
     Active Substance: LATANOPROST
     Route: 065
  6. LEVOTHYROXINE SODIUM [Concomitant]
     Active Substance: LEVOTHYROXINE SODIUM
     Route: 065
  7. LOVASTATIN [Concomitant]
     Active Substance: LOVASTATIN
     Route: 065
  8. METHOTREXATE [Concomitant]
     Active Substance: METHOTREXATE
     Route: 065
  9. CYANOCOBALAMIN [Concomitant]
     Active Substance: CYANOCOBALAMIN
     Route: 065

REACTIONS (2)
  - Decreased appetite [Not Recovered/Not Resolved]
  - Asthenia [Not Recovered/Not Resolved]
